FAERS Safety Report 9677219 (Version 2)
Quarter: 2013Q4

REPORT INFORMATION
  Report Type: Spontaneous
  Country: US (occurrence: US)
  Receive Date: 20131108
  Receipt Date: 20131108
  Transmission Date: 20140711
  Serious: Yes (Other)
  Sender: FDA-Public Use
  Company Number: US-ROCHE-1298281

PATIENT
  Sex: Male
  Weight: 60.21 kg

DRUGS (3)
  1. NUTROPIN [Suspect]
     Indication: GROWTH HORMONE DEFICIENCY
     Route: 058
     Dates: start: 201302, end: 20131031
  2. SYNTHROID [Concomitant]
     Indication: HYPOTHYROIDISM
     Route: 048
     Dates: start: 20130424
  3. VYVANSE [Concomitant]

REACTIONS (3)
  - Lower extremity mass [Not Recovered/Not Resolved]
  - Osteochondroma [Unknown]
  - Arthralgia [Unknown]
